FAERS Safety Report 6251584-2 (Version None)
Quarter: 2009Q2

REPORT INFORMATION
  Report Type: 
  Country: None (occurrence: None)
  Receive Date: 20090630
  Receipt Date: 20090622
  Transmission Date: 20091009
  Serious: Yes (Other)
  Sender: FDA-Public Use
  Company Number: US-GENENTECH-285494

PATIENT
  Sex: Female
  Weight: 108 kg

DRUGS (1)
  1. XOLAIR [Suspect]
     Indication: ASTHMA
     Dosage: 225 UNK, Q2W
     Route: 058
     Dates: start: 20050101

REACTIONS (3)
  - EYE SWELLING [None]
  - PRURITUS [None]
  - SENSATION OF FOREIGN BODY [None]
